FAERS Safety Report 5699334-2 (Version None)
Quarter: 2008Q2

REPORT INFORMATION
  Report Type: 
  Country: None (occurrence: None)
  Receive Date: 20080404
  Receipt Date: 20080327
  Transmission Date: 20081010
  Serious: Yes (Other)
  Sender: FDA-Public Use
  Company Number: 2008PV033915

PATIENT
  Age: 41 Year
  Sex: Female
  Weight: 99.7913 kg

DRUGS (13)
  1. SYMLIN [Suspect]
     Indication: TYPE 1 DIABETES MELLITUS
     Dosage: SEE IMAGE
     Route: 058
     Dates: start: 20071109, end: 20071112
  2. SYMLIN [Suspect]
     Indication: TYPE 1 DIABETES MELLITUS
     Dosage: SEE IMAGE
     Route: 058
     Dates: start: 20071112, end: 20071226
  3. SYMLIN [Suspect]
     Indication: TYPE 1 DIABETES MELLITUS
     Dosage: SEE IMAGE
     Route: 058
     Dates: end: 20080101
  4. SYMLIN [Suspect]
     Indication: TYPE 1 DIABETES MELLITUS
     Dosage: SEE IMAGE
     Route: 058
     Dates: start: 20071226
  5. SYMLINPEN 60 (PRAMLINTIDE ACETATE) PEN-INJECTOR (1.0 MG/ML) [Suspect]
     Indication: TYPE 1 DIABETES MELLITUS
     Dosage: 90 MCG;BID;SC
     Route: 058
     Dates: start: 20080101
  6. LANTUS [Suspect]
     Indication: TYPE 1 DIABETES MELLITUS
     Dosage: 20 UNITS;QAM;SC : 26 UNITS;QPM;SC : 26 UNITS;BID;SC
     Route: 058
     Dates: end: 20071225
  7. LANTUS [Suspect]
     Indication: TYPE 1 DIABETES MELLITUS
     Dosage: 20 UNITS;QAM;SC : 26 UNITS;QPM;SC : 26 UNITS;BID;SC
     Route: 058
     Dates: start: 20071226
  8. LANTUS [Suspect]
     Indication: TYPE 1 DIABETES MELLITUS
     Dosage: 20 UNITS;QAM;SC : 26 UNITS;QPM;SC : 26 UNITS;BID;SC
     Route: 058
     Dates: start: 20071226
  9. HUMALOG [Concomitant]
  10. MICARDIS [Concomitant]
  11. METOPROLOL - SLOW RELEASE [Concomitant]
  12. EZETIMIBE [Concomitant]
  13. CRESTOR [Concomitant]

REACTIONS (8)
  - BLOOD GLUCOSE DECREASED [None]
  - BLOOD GLUCOSE INCREASED [None]
  - CONFUSIONAL STATE [None]
  - CRYING [None]
  - INCREASED APPETITE [None]
  - NAUSEA [None]
  - ORAL INTAKE REDUCED [None]
  - WEIGHT DECREASED [None]
